FAERS Safety Report 11977936 (Version 1)
Quarter: 2016Q1

REPORT INFORMATION
  Report Type: Spontaneous
  Country: AT (occurrence: AT)
  Receive Date: 20160129
  Receipt Date: 20160129
  Transmission Date: 20160526
  Serious: Yes (Hospitalization)
  Sender: FDA-Public Use
  Company Number: AT-LEO PHARMA-239794

PATIENT
  Age: 65 Year
  Sex: Male

DRUGS (2)
  1. PICATO [Suspect]
     Active Substance: INGENOL MEBUTATE
     Indication: ACTINIC KERATOSIS
     Dates: start: 20151104
  2. SOLARAZE [Concomitant]
     Active Substance: DICLOFENAC SODIUM
     Indication: PRODUCT USED FOR UNKNOWN INDICATION

REACTIONS (6)
  - Application site reaction [Recovered/Resolved]
  - Application site ulcer [Recovered/Resolved]
  - Application site erosion [Recovered/Resolved]
  - Superinfection [Recovered/Resolved]
  - Application site erythema [Recovering/Resolving]
  - Secretion discharge [Recovered/Resolved]
